FAERS Safety Report 13349985 (Version 1)
Quarter: 2017Q1

REPORT INFORMATION
  Report Type: Spontaneous
  Country: US (occurrence: US)
  Receive Date: 20170319
  Receipt Date: 20170319
  Transmission Date: 20170429
  Serious: Yes (Disabling)
  Sender: FDA-Public Use
  Company Number: None

PATIENT
  Age: 53 Year
  Sex: Female
  Weight: 63 kg

DRUGS (5)
  1. FISH OIL SUPPLEMENTS [Concomitant]
     Active Substance: FISH OIL
  2. VITAMIN D SUPPLEMENTS [Concomitant]
  3. L THYROXINE [Concomitant]
     Active Substance: LEVOTHYROXINE SODIUM
  4. ACIDOPHILUS-PROBIOTIC COMPLEX [Concomitant]
  5. RALOXIFENE HCL [Suspect]
     Active Substance: RALOXIFENE
     Indication: BREAST CANCER
     Dosage: ?          QUANTITY:1 TABLET(S);?
     Route: 048
     Dates: start: 20170207, end: 20170228

REACTIONS (7)
  - Abdominal distension [None]
  - Gastrointestinal pain [None]
  - Abdominal pain upper [None]
  - Nausea [None]
  - Product substitution issue [None]
  - Gastroenteritis viral [None]
  - Diarrhoea [None]

NARRATIVE: CASE EVENT DATE: 20170207
